FAERS Safety Report 11218503 (Version 8)
Quarter: 2022Q2

REPORT INFORMATION
  Report Type: Spontaneous
  Country: US (occurrence: US)
  Receive Date: 20150625
  Receipt Date: 20220505
  Transmission Date: 20220720
  Serious: No
  Sender: FDA-Public Use
  Company Number: US-PFIZER INC-2015210746

PATIENT
  Age: 49 Year
  Sex: Female
  Weight: 68 kg

DRUGS (2)
  1. SERTRALINE HYDROCHLORIDE [Suspect]
     Active Substance: SERTRALINE HYDROCHLORIDE
     Indication: Chronic fatigue syndrome
     Dosage: 50 MG (STARTED  50MG EVERY NIGHT)
     Dates: start: 1994
  2. SERTRALINE HYDROCHLORIDE [Suspect]
     Active Substance: SERTRALINE HYDROCHLORIDE
     Dosage: 150 MG, 1X/DAY (BEFORE BED)
     Route: 048
     Dates: start: 200706, end: 200708

REACTIONS (4)
  - Chronic fatigue syndrome [Recovered/Resolved]
  - Disease recurrence [Recovered/Resolved]
  - Drug withdrawal syndrome [Recovered/Resolved]
  - Disability [Unknown]

NARRATIVE: CASE EVENT DATE: 20070801
